FAERS Safety Report 7280170-0 (Version None)
Quarter: 2011Q1

REPORT INFORMATION
  Report Type: 
  Country: None (occurrence: None)
  Receive Date: 20110208
  Receipt Date: 20110117
  Transmission Date: 20110831
  Serious: Yes (Hospitalization, Other)
  Sender: FDA-Public Use
  Company Number: PHHY2011JP01051

PATIENT
  Age: 55 Year
  Sex: Male
  Weight: 51.5 kg

DRUGS (9)
  1. LASIX [Suspect]
     Dosage: 20 MG, UNK
  2. ADALAT [Concomitant]
     Dosage: 40 MG, UNK
  3. ADALAT [Concomitant]
     Dosage: 80 MG, UNK
  4. DIOVAN [Suspect]
     Indication: HYPERTENSION
     Dosage: 80 MG, UNK
  5. ADALAT [Concomitant]
     Dosage: 20 MG, UNK
  6. MAINTATE [Concomitant]
     Dosage: 5 MG, UNK
  7. CALBLOCK [Concomitant]
     Dosage: 16 MG, UNK
  8. DIOVAN [Suspect]
     Dosage: 160 MG, UNK
  9. DIOVAN [Suspect]
     Dosage: 80 MG, UNK

REACTIONS (8)
  - PRURITUS [None]
  - CHRONIC OBSTRUCTIVE PULMONARY DISEASE [None]
  - RESPIRATORY DISTRESS [None]
  - DECREASED APPETITE [None]
  - RENAL DISORDER [None]
  - OEDEMA PERIPHERAL [None]
  - RENAL ARTERY STENOSIS [None]
  - MALAISE [None]
